FAERS Safety Report 5621866-3 (Version None)
Quarter: 2008Q1

REPORT INFORMATION
  Report Type: 
  Country: None (occurrence: None)
  Receive Date: 20080211
  Receipt Date: 20071126
  Transmission Date: 20080703
  Serious: No
  Sender: FDA-Public Use
  Company Number: US-BRISTOL-MYERS SQUIBB COMPANY-13994546

PATIENT
  Age: 45 Year
  Sex: Female
  Weight: 61 kg

DRUGS (1)
  1. IXEMPRA [Suspect]
     Indication: BREAST CANCER STAGE IV
     Dates: start: 20071101

REACTIONS (1)
  - ALOPECIA [None]
